FAERS Safety Report 16779012 (Version 3)
Quarter: 2020Q1

REPORT INFORMATION
  Report Type: Spontaneous
  Country: FR (occurrence: FR)
  Receive Date: 20190906
  Receipt Date: 20200111
  Transmission Date: 20200409
  Serious: Yes (Hospitalization)
  Sender: FDA-Public Use
  Company Number: FR-TEVA-2019-FR-1102466

PATIENT
  Age: 31 Year
  Sex: Female
  Weight: 93.4 kg

DRUGS (11)
  1. DOXORUBICIN [Suspect]
     Active Substance: DOXORUBICIN
     Indication: B-CELL LYMPHOMA
     Dosage: 1000 MG PER 2 WEEKS
     Route: 042
     Dates: start: 20190605, end: 20190715
  2. FILGRASTIM ((BACTERIE/ESCHERICHIA COLI)) [Concomitant]
     Active Substance: FILGRASTIM
     Indication: COLONY STIMULATING FACTOR THERAPY
     Route: 058
     Dates: start: 20190710, end: 201907
  3. BACTRIM [Concomitant]
     Active Substance: SULFAMETHOXAZOLE\TRIMETHOPRIM
     Indication: OPPORTUNISTIC INFECTION PROPHYLAXIS
     Dosage: 3 DOSAGE FORMS PER 1 WEEK
     Route: 048
     Dates: start: 20190605, end: 20190729
  4. VALACICLOVIR [Concomitant]
     Active Substance: VALACYCLOVIR HYDROCHLORIDE
     Indication: ANTIVIRAL PROPHYLAXIS
     Dosage: 1000 MG, 1 DAY
     Route: 048
     Dates: start: 20190605, end: 20190729
  5. FOLINATE CALCIQUE [Concomitant]
     Active Substance: LEUCOVORIN CALCIUM
     Indication: VITAMIN SUPPLEMENTATION
     Dosage: 25 MG PER 1 WEEK
     Route: 048
     Dates: start: 20190605, end: 201907
  6. PREDNISONE. [Suspect]
     Active Substance: PREDNISONE
     Indication: B-CELL LYMPHOMA
     Dosage: 400 MG PER 2 WEEKS
     Route: 048
     Dates: start: 20190605, end: 201907
  7. RITUXIMAB ((MAMMIFERE/HAMSTER/CELLULES CHO)) [Suspect]
     Active Substance: RITUXIMAB
     Indication: B-CELL LYMPHOMA
     Dosage: 700 MG PER 2 WEEKS
     Route: 042
     Dates: start: 20190605, end: 20190729
  8. CYCLOPHOSPHAMIDE. [Suspect]
     Active Substance: CYCLOPHOSPHAMIDE
     Indication: B-CELL LYMPHOMA
     Dosage: 1500 MG PER 2 WEEKS
     Route: 042
     Dates: start: 20190605, end: 20190715
  9. SULFATE DE VINCRISTINE [Suspect]
     Active Substance: VINCRISTINE SULFATE
     Indication: B-CELL LYMPHOMA
     Dosage: 2 MG PER 2 WEEKS
     Route: 042
     Dates: start: 20190605, end: 20190715
  10. MESNA. [Concomitant]
     Active Substance: MESNA
     Indication: PROPHYLAXIS
     Dosage: 1500 MG PER 2 WEEKS
     Route: 042
     Dates: start: 20190606, end: 201907
  11. OMEPRAZOLE. [Concomitant]
     Active Substance: OMEPRAZOLE
     Indication: PROPHYLAXIS AGAINST GASTROINTESTINAL ULCER
     Route: 048
     Dates: start: 20190715, end: 20190729

REACTIONS (1)
  - Hepatitis E [Not Recovered/Not Resolved]

NARRATIVE: CASE EVENT DATE: 20190727
